FAERS Safety Report 5181068-4 (Version None)
Quarter: 2006Q4

REPORT INFORMATION
  Report Type: 
  Country: None (occurrence: None)
  Receive Date: 20061218
  Receipt Date: 20061218
  Transmission Date: 20070319
  Serious: Yes (Other)
  Sender: FDA-Public Use
  Company Number: None

PATIENT
  Age: 82 Year
  Sex: Male
  Weight: 80 kg

DRUGS (1)
  1. SINGULAIR [Suspect]
     Indication: URAEMIC PRURITUS
     Dosage: TABLETE 10MG ONCE DAILY PO
     Route: 048
     Dates: start: 20060310, end: 20060329

REACTIONS (1)
  - MYELODYSPLASTIC SYNDROME [None]
